FAERS Safety Report 9198950 (Version 1)
Quarter: 2013Q1

REPORT INFORMATION
  Report Type: Spontaneous
  Country: NL (occurrence: None)
  Receive Date: 20130326
  Receipt Date: 20130326
  Transmission Date: 20140127
  Serious: Yes (Hospitalization)
  Sender: FDA-Public Use
  Company Number: 2013-1160

PATIENT
  Age: 50 Year
  Sex: Female
  Weight: 66 kg

DRUGS (2)
  1. SOMATULINE [Suspect]
     Indication: CONGENITAL CYSTIC KIDNEY DISEASE
  2. AMLODIPINE (AMLODIPINE) [Concomitant]

REACTIONS (5)
  - Hepatic cyst infection [None]
  - Escherichia sepsis [None]
  - Abdominal pain [None]
  - Off label use [None]
  - Hepatomegaly [None]
